FAERS Safety Report 6222136-5 (Version None)
Quarter: 2009Q2

REPORT INFORMATION
  Report Type: 
  Country: None (occurrence: None)
  Receive Date: 20090611
  Receipt Date: 20090604
  Transmission Date: 20091009
  Serious: Yes (Other)
  Sender: FDA-Public Use
  Company Number: US-ALLERGAN-0907856US

PATIENT
  Sex: Female

DRUGS (2)
  1. ACULAR [Suspect]
     Indication: INFECTION
  2. XALATAN [Suspect]
     Indication: GLAUCOMA

REACTIONS (1)
  - BLINDNESS UNILATERAL [None]
